FAERS Safety Report 24725286 (Version 1)
Quarter: 2024Q4

REPORT INFORMATION
  Report Type: Spontaneous
  Country: US (occurrence: US)
  Receive Date: 20241212
  Receipt Date: 20241212
  Transmission Date: 20250115
  Serious: No
  Sender: ALVOGEN
  Company Number: None

PATIENT

DRUGS (1)
  1. LISDEXAMFETAMINE [Suspect]
     Active Substance: LISDEXAMFETAMINE
     Indication: Binge eating
     Dosage: STRENGTH: 30MG
     Route: 048

REACTIONS (11)
  - Brain fog [Unknown]
  - Dissociative disorder [Unknown]
  - Hunger [Unknown]
  - Binge eating [Unknown]
  - Condition aggravated [Unknown]
  - Disturbance in attention [Unknown]
  - Asthenia [Unknown]
  - Fatigue [Unknown]
  - Loss of personal independence in daily activities [Unknown]
  - Therapeutic response changed [Unknown]
  - Product substitution issue [Unknown]
